FAERS Safety Report 10716365 (Version 2)
Quarter: 2015Q1

REPORT INFORMATION
  Report Type: Spontaneous
  Country: BR (occurrence: BR)
  Receive Date: 20150116
  Receipt Date: 20150123
  Transmission Date: 20150721
  Serious: Yes (Hospitalization)
  Sender: FDA-Public Use
  Company Number: BR-SA-2015SA004563

PATIENT
  Age: 30 Year
  Sex: Female

DRUGS (1)
  1. ENOXAPARIN SODIUM. [Suspect]
     Active Substance: ENOXAPARIN SODIUM
     Indication: PROPHYLAXIS
     Dosage: STRENGTH/DOSAGE: CLEXANE (ENOXAPARIN SODIUM) SAFETY LOCK 40MG 2 SYRINGES AT A DOSE OF 1 SYRINGE
     Route: 058

REACTIONS (7)
  - Injection site reaction [Unknown]
  - Vomiting [Unknown]
  - Nausea [Unknown]
  - Oedema [Unknown]
  - Induration [Unknown]
  - Cellulitis [Unknown]
  - Pyrexia [Unknown]
